FAERS Safety Report 4748175-9 (Version None)
Quarter: 2005Q3

REPORT INFORMATION
  Report Type: 
  Country: None (occurrence: None)
  Receive Date: 20050818
  Receipt Date: 20050127
  Transmission Date: 20060218
  Serious: Yes (Death)
  Sender: FDA-Public Use
  Company Number: US-ROCHE-393966

PATIENT
  Age: 55 Year
  Sex: Male
  Weight: 72.6 kg

DRUGS (11)
  1. PEGASYS [Suspect]
     Indication: HEPATITIS C
     Route: 058
     Dates: start: 20031201, end: 20041230
  2. COPEGUS [Suspect]
     Indication: HEPATITIS C
     Route: 048
     Dates: start: 20030101, end: 20050116
  3. PEG-INTRON [Suspect]
     Indication: HEPATITIS C
     Route: 058
     Dates: start: 20041230, end: 20050116
  4. NORCO [Concomitant]
     Indication: MYALGIA
     Dosage: INDICATION FOR MYALGIA AND PAIN.
     Route: 048
     Dates: start: 20040129, end: 20050116
  5. PROTONIX [Concomitant]
     Dosage: DAILY.
     Route: 048
     Dates: start: 20020815, end: 20050116
  6. PERCODAN [Concomitant]
     Indication: PAIN
     Route: 048
     Dates: start: 20041008, end: 20050116
  7. PROCRIT [Concomitant]
     Indication: ANAEMIA
     Dosage: STRENGTH REPORTED AS 20000 UNITS.
     Route: 058
     Dates: start: 20040415, end: 20050116
  8. DIAZEPAM [Concomitant]
     Indication: ANXIETY
     Route: 048
     Dates: start: 20031201, end: 20050116
  9. LORAZEPAM [Concomitant]
     Indication: ANXIETY
     Route: 048
     Dates: start: 20030715, end: 20050116
  10. BUPROPION HCL [Concomitant]
     Indication: DEPRESSION
     Route: 048
     Dates: start: 20031201, end: 20050116
  11. LEVOXYL [Concomitant]
     Indication: HYPOTHYROIDISM
     Dosage: DAILY.
     Route: 048
     Dates: start: 20030715, end: 20050116

REACTIONS (4)
  - CEREBRAL HAEMORRHAGE [None]
  - DRUG INEFFECTIVE [None]
  - HAEMORRHAGIC STROKE [None]
  - THERAPY NON-RESPONDER [None]
